FAERS Safety Report 8580776 (Version 4)
Quarter: 2021Q1

REPORT INFORMATION
  Report Type: Spontaneous
  Country: BR (occurrence: BR)
  Receive Date: 20120525
  Receipt Date: 20210123
  Transmission Date: 20210420
  Serious: Yes (Other)
  Sender: FDA-Public Use
  Company Number: BR-ROCHE-1070597

PATIENT
  Sex: Female

DRUGS (5)
  1. MOMETASONE FUROATE. [Concomitant]
     Active Substance: MOMETASONE FUROATE
     Dates: start: 20121220
  2. XOLAIR [Suspect]
     Active Substance: OMALIZUMAB
     Indication: PRODUCT USED FOR UNKNOWN INDICATION
     Route: 058
     Dates: start: 20120514
  3. BUSONID [Concomitant]
     Active Substance: BUDESONIDE
  4. XOLAIR [Suspect]
     Active Substance: OMALIZUMAB
     Indication: PRODUCT USED FOR UNKNOWN INDICATION
     Route: 065
  5. FOSTAIR [Concomitant]
     Active Substance: BECLOMETHASONE\FORMOTEROL
     Dates: start: 20121220

REACTIONS (3)
  - Blood immunoglobulin E increased [Recovered/Resolved]
  - Asthma [Recovered/Resolved]
  - Exposure during pregnancy [Unknown]
